FAERS Safety Report 25072481 (Version 2)
Quarter: 2025Q1

REPORT INFORMATION
  Report Type: Spontaneous
  Country: DE (occurrence: DE)
  Receive Date: 20250313
  Receipt Date: 20250321
  Transmission Date: 20250408
  Serious: Yes (Other)
  Sender: UCB
  Company Number: DE-STADA-01359950

PATIENT
  Age: 8 Year
  Sex: Male

DRUGS (16)
  1. LACOSAMIDE [Suspect]
     Active Substance: LACOSAMIDE
     Indication: Partial seizures
  2. LEVETIRACETAM [Suspect]
     Active Substance: LEVETIRACETAM
     Indication: Partial seizures
  3. LAMOTRIGINE [Suspect]
     Active Substance: LAMOTRIGINE
     Indication: Partial seizures
  4. VALPROATE [Suspect]
     Active Substance: VALPROIC ACID
     Indication: Partial seizures
  5. OXCARBAZEPINE [Suspect]
     Active Substance: OXCARBAZEPINE
     Indication: Partial seizures
     Dosage: 1200 MILLIGRAM, ONCE DAILY (QD)
  6. PHENOBARBITAL [Suspect]
     Active Substance: PHENOBARBITAL
     Indication: Partial seizures
     Dosage: 225 MILLIGRAM, ONCE DAILY (QD)
  7. PHENOBARBITAL [Suspect]
     Active Substance: PHENOBARBITAL
  8. CARBAMAZEPINE [Suspect]
     Active Substance: CARBAMAZEPINE
     Indication: Partial seizures
  9. TOPIRAMATE [Suspect]
     Active Substance: TOPIRAMATE
     Indication: Partial seizures
  10. ZONISAMIDE [Suspect]
     Active Substance: ZONISAMIDE
     Indication: Partial seizures
  11. PHENYTOIN [Suspect]
     Active Substance: PHENYTOIN
     Indication: Partial seizures
  12. CENOBAMATE [Suspect]
     Active Substance: CENOBAMATE
     Indication: Partial seizures
     Dosage: 100 MILLIGRAM, DAILY
  13. CENOBAMATE [Suspect]
     Active Substance: CENOBAMATE
     Dosage: 200 MILLIGRAM, DAILY
  14. CENOBAMATE [Suspect]
     Active Substance: CENOBAMATE
     Dosage: 300 MILLIGRAM, DAILY
  15. TACROLIMUS [Concomitant]
     Active Substance: TACROLIMUS
     Indication: Partial seizures
  16. AMYTAL [AMOBARBITAL] [Concomitant]
     Indication: Wada test

REACTIONS (8)
  - Epilepsy [Recovering/Resolving]
  - Rebound effect [Recovering/Resolving]
  - Ataxia [Unknown]
  - Vision blurred [Unknown]
  - Diplopia [Unknown]
  - Dysarthria [Unknown]
  - Sedation [Unknown]
  - Multiple-drug resistance [Unknown]
